FAERS Safety Report 6761273-3 (Version None)
Quarter: 2010Q2

REPORT INFORMATION
  Report Type: 
  Country: None (occurrence: None)
  Receive Date: 20100608
  Receipt Date: 20100601
  Transmission Date: 20101027
  Serious: Yes (Death)
  Sender: FDA-Public Use
  Company Number: IL-AMGEN-QUU416487

PATIENT
  Age: 1 Day
  Sex: Female

DRUGS (1)
  1. ENBREL [Suspect]
     Indication: DRUG USE FOR UNKNOWN INDICATION
     Dosage: UNSPECIFIED
     Route: 064
     Dates: start: 20090901

REACTIONS (2)
  - DEATH [None]
  - PREMATURE BABY [None]
